FAERS Safety Report 14664431 (Version 3)
Quarter: 2018Q2

REPORT INFORMATION
  Report Type: Report from Study
  Country: US (occurrence: US)
  Receive Date: 20180321
  Receipt Date: 20180508
  Transmission Date: 20180711
  Serious: Yes (Hospitalization, Other)
  Sender: FDA-Public Use
  Company Number: US-TESARO, INC-US-2017TSO03913

PATIENT

DRUGS (5)
  1. ZEJULA [Suspect]
     Active Substance: NIRAPARIB
     Indication: OVARIAN CANCER
     Dosage: 300 MG, QD
     Route: 048
     Dates: start: 20171019
  2. ZEJULA [Suspect]
     Active Substance: NIRAPARIB
     Dosage: 300 MG, QD
     Route: 048
  3. ZEJULA [Suspect]
     Active Substance: NIRAPARIB
     Dosage: 300 MG, QD
     Route: 048
     Dates: start: 20171105
  4. ZEJULA [Suspect]
     Active Substance: NIRAPARIB
     Dosage: 300 MG, QD
     Route: 048
  5. ZEJULA [Suspect]
     Active Substance: NIRAPARIB
     Dosage: 300 MG, QD
     Route: 048

REACTIONS (32)
  - Asthma [Unknown]
  - Nausea [Not Recovered/Not Resolved]
  - Arthralgia [Not Recovered/Not Resolved]
  - Cardiovascular symptom [Recovering/Resolving]
  - Mean cell volume increased [Not Recovered/Not Resolved]
  - Neck pain [Not Recovered/Not Resolved]
  - Flatulence [Unknown]
  - Crying [Unknown]
  - Red blood cell count decreased [Unknown]
  - White blood cell count decreased [Unknown]
  - Limb discomfort [Recovering/Resolving]
  - Back pain [Not Recovered/Not Resolved]
  - Musculoskeletal pain [Not Recovered/Not Resolved]
  - Muscle tightness [Not Recovered/Not Resolved]
  - Vomiting [Not Recovered/Not Resolved]
  - Headache [Recovering/Resolving]
  - Intervertebral disc degeneration [Not Recovered/Not Resolved]
  - Feeling hot [Unknown]
  - Anger [Unknown]
  - Fatigue [Not Recovered/Not Resolved]
  - Pain in extremity [Recovering/Resolving]
  - Blood potassium decreased [Recovered/Resolved]
  - Blood pressure increased [Not Recovered/Not Resolved]
  - Arthritis [Not Recovered/Not Resolved]
  - Sciatica [Not Recovered/Not Resolved]
  - Blood thyroid stimulating hormone increased [Not Recovered/Not Resolved]
  - Loss of personal independence in daily activities [Unknown]
  - Feeling abnormal [Unknown]
  - Hyperhidrosis [Not Recovered/Not Resolved]
  - Constipation [Not Recovered/Not Resolved]
  - Diarrhoea [Not Recovered/Not Resolved]
  - Abdominal pain lower [Unknown]

NARRATIVE: CASE EVENT DATE: 20171117
